FAERS Safety Report 9090595 (Version 3)
Quarter: 2014Q1

REPORT INFORMATION
  Report Type: Spontaneous
  Country: PT (occurrence: PT)
  Receive Date: 20130131
  Receipt Date: 20140110
  Transmission Date: 20141002
  Serious: Yes (Hospitalization, Other)
  Sender: FDA-Public Use
  Company Number: PT-JNJFOC-20130112954

PATIENT
  Age: 61 Year
  Sex: Male
  Weight: 96 kg

DRUGS (30)
  1. INTELENCE [Suspect]
     Indication: HIV INFECTION
     Route: 065
  2. PREZISTA [Suspect]
     Indication: HIV INFECTION
     Dosage: 400 MG, 2 TABLETS, TWICE A DAY
     Route: 065
     Dates: start: 20120511
  3. VELCADE [Suspect]
     Indication: PLASMA CELL MYELOMA
     Dosage: 2.28 M2, SECOND CYCLE
     Route: 058
     Dates: start: 20121101
  4. VELCADE [Suspect]
     Indication: PLASMA CELL MYELOMA
     Dosage: 2.26 M2
     Route: 058
     Dates: start: 20121004
  5. VELCADE [Suspect]
     Indication: PLASMA CELL MYELOMA
     Dosage: 2.24M2
     Route: 058
     Dates: start: 20121128
  6. VELCADE [Suspect]
     Indication: PLASMA CELL MYELOMA
     Route: 058
     Dates: start: 20121226
  7. VELCADE [Suspect]
     Indication: PLASMA CELL MYELOMA
     Route: 058
     Dates: start: 20130102
  8. VELCADE [Suspect]
     Indication: PLASMA CELL MYELOMA
     Dosage: 2.28 M2, SECOND CYCLE
     Route: 058
     Dates: start: 20121121
  9. VELCADE [Suspect]
     Indication: PLASMA CELL MYELOMA
     Route: 058
     Dates: start: 20121205
  10. PAMIDRONATE [Suspect]
     Indication: PRODUCT USED FOR UNKNOWN INDICATION
     Dosage: FROM DAY 8 OF THE 2ND CYCLE
     Route: 065
  11. CYCLOPHOSPHAMIDE [Suspect]
     Indication: PLASMA CELL MYELOMA
     Route: 058
  12. DEXAMETHASONE [Suspect]
     Indication: PLASMA CELL MYELOMA
     Dosage: 2.28 M2, SECOND CYCLE
     Route: 058
     Dates: start: 20121101
  13. DEXAMETHASONE [Suspect]
     Indication: PLASMA CELL MYELOMA
     Dosage: 2.26 M2
     Route: 058
     Dates: start: 20121004
  14. DEXAMETHASONE [Suspect]
     Indication: PLASMA CELL MYELOMA
     Dosage: 2.28 M2, SECOND CYCLE
     Route: 058
     Dates: start: 20121121
  15. DEXAMETHASONE [Suspect]
     Indication: PLASMA CELL MYELOMA
     Dosage: 2.24M2
     Route: 058
     Dates: start: 20121128
  16. DEXAMETHASONE [Suspect]
     Indication: PLASMA CELL MYELOMA
     Route: 058
     Dates: start: 20121205
  17. DEXAMETHASONE [Suspect]
     Indication: PLASMA CELL MYELOMA
     Route: 058
     Dates: start: 20121226
  18. DEXAMETHASONE [Suspect]
     Indication: PLASMA CELL MYELOMA
     Route: 058
     Dates: start: 20130102
  19. TRAMADOL [Concomitant]
     Indication: BACK PAIN
     Dosage: 8/8H
     Route: 065
  20. EPOETIN NOS [Concomitant]
     Indication: HAEMOGLOBIN ABNORMAL
     Dosage: INCREASED TO 30,000 U
     Route: 058
  21. EPOETIN NOS [Concomitant]
     Indication: HAEMOGLOBIN ABNORMAL
     Dosage: 15000U
     Route: 058
  22. METOCLOPRAMIDE [Concomitant]
     Indication: BACK PAIN
     Route: 065
  23. AMLODIPINE [Concomitant]
     Indication: HYPERTENSION
     Route: 065
  24. FOLIC ACID [Concomitant]
     Dosage: AT LUNCH
     Route: 065
  25. ACYCLOVIR [Concomitant]
     Indication: PROPHYLAXIS
     Dosage: 12/12 HOUR
     Route: 065
  26. OMEPRAZOLE [Concomitant]
     Dosage: ON FASTING
     Route: 065
  27. CALCIUM CARBONATE [Concomitant]
     Dosage: AT BREAKFAST
     Route: 065
  28. MAGNESIOCARD [Concomitant]
     Dosage: 1 SACHET 12/12 HOUR
     Route: 065
  29. SUCRALFATE [Concomitant]
     Dosage: 8/8H
     Route: 065
  30. FERROUS IRON SUPPLEMENT [Concomitant]
     Dosage: DURING DIALYSIS
     Route: 065

REACTIONS (17)
  - Neutropenia [Recovered/Resolved]
  - Cardiac failure [Recovered/Resolved]
  - Fall [Recovered/Resolved]
  - Tachycardia [Recovered/Resolved]
  - Pericardial effusion [Recovered/Resolved]
  - Anaemia [Recovered/Resolved]
  - Renal failure [Recovered/Resolved]
  - Osteolysis [Recovered/Resolved]
  - Infection [Recovered/Resolved]
  - Facial bones fracture [Recovered/Resolved]
  - Toxicity to various agents [Recovered/Resolved]
  - Viral load increased [Recovered/Resolved]
  - Dizziness [Recovered/Resolved]
  - Irritability [Recovered/Resolved]
  - Fatigue [Recovered/Resolved]
  - Pyrexia [Recovered/Resolved]
  - Prescribed overdose [Unknown]
